FAERS Safety Report 14101046 (Version 1)
Quarter: 2017Q4

REPORT INFORMATION
  Report Type: Spontaneous
  Country: GB (occurrence: GB)
  Receive Date: 20171018
  Receipt Date: 20171018
  Transmission Date: 20180321
  Serious: Yes (Other)
  Sender: FDA-Public Use
  Company Number: GB-009507513-1710GBR006025

PATIENT
  Sex: Female

DRUGS (2)
  1. NEXPLANON [Suspect]
     Active Substance: ETONOGESTREL
     Indication: CONTRACEPTIVE IMPLANT
  2. ST JOHNS WORT [Interacting]
     Active Substance: ST. JOHN^S WORT
     Indication: DEPRESSION

REACTIONS (2)
  - Pregnancy with implant contraceptive [Unknown]
  - Drug interaction [Unknown]
